FAERS Safety Report 8485191 (Version 5)
Quarter: 2013Q4

REPORT INFORMATION
  Report Type: Spontaneous
  Country: US (occurrence: None)
  Receive Date: 20120309
  Receipt Date: 20131226
  Transmission Date: 20140711
  Serious: Yes (Other)
  Sender: FDA-Public Use
  Company Number: PHHY2010US67832

PATIENT
  Age: 50 Year
  Sex: Female

DRUGS (6)
  1. EXTAVIA [Suspect]
     Indication: MULTIPLE SCLEROSIS
     Dosage: 0.25 MG, QOD, SUBCUTANEOUS
     Route: 058
     Dates: start: 20100105
  2. PROVIGIL [Concomitant]
  3. LORAZEPAM [Concomitant]
  4. ALEVE [Concomitant]
  5. VITAMIN D (ERGOCALCIFEROL) [Concomitant]
  6. VITAMIN B12 [Concomitant]

REACTIONS (10)
  - Multiple sclerosis relapse [None]
  - Cough [None]
  - Injection site erythema [None]
  - Nasopharyngitis [None]
  - Balance disorder [None]
  - Gait disturbance [None]
  - Fatigue [None]
  - Asthenia [None]
  - Somnolence [None]
  - Muscular weakness [None]
